FAERS Safety Report 8974276 (Version 1)
Quarter: 2012Q4

REPORT INFORMATION
  Report Type: Spontaneous
  Country: US (occurrence: None)
  Receive Date: 20121217
  Receipt Date: 20121217
  Transmission Date: 20130627
  Serious: Yes (Other)
  Sender: FDA-Public Use
  Company Number: None

PATIENT
  Age: 34 Year
  Sex: Male
  Weight: 86.18 kg

DRUGS (1)
  1. PROPECIA MERCK [Suspect]
     Indication: MALE PATTERN BALDNESS
     Dosage: 1mg daily po
     Route: 048
     Dates: start: 20121216, end: 20121216

REACTIONS (3)
  - Libido decreased [None]
  - Erectile dysfunction [None]
  - Sexual dysfunction [None]
